FAERS Safety Report 12782676 (Version 1)
Quarter: 2016Q3

REPORT INFORMATION
  Report Type: Report from Study
  Country: US (occurrence: US)
  Receive Date: 20160927
  Receipt Date: 20160927
  Transmission Date: 20161109
  Serious: Yes (Other)
  Sender: FDA-Public Use
  Company Number: US-ROCHE-1834354

PATIENT
  Age: 55 Year
  Sex: Female
  Weight: 128 kg

DRUGS (1)
  1. BEVACIZUMAB [Suspect]
     Active Substance: BEVACIZUMAB
     Indication: ENDOMETRIAL CANCER
     Dosage: LAST TREATMENT DATE- 14/JUN/2012
     Route: 042
     Dates: start: 20120106

REACTIONS (5)
  - Neutrophil count decreased [Unknown]
  - Anaemia [Unknown]
  - Arthralgia [Unknown]
  - Platelet count decreased [Unknown]
  - White blood cell count decreased [Unknown]
